FAERS Safety Report 5086508-7 (Version None)
Quarter: 2006Q3

REPORT INFORMATION
  Report Type: 
  Country: None (occurrence: None)
  Receive Date: 20060821
  Receipt Date: 20060821
  Transmission Date: 20061208
  Serious: Yes (Hospitalization)
  Sender: FDA-Public Use
  Company Number: None

PATIENT
  Age: 76 Year
  Sex: Female
  Weight: 61 kg

DRUGS (2)
  1. TRILEPTAL [Suspect]
     Indication: NEUROPATHY PERIPHERAL
     Dosage: 300MG     BID -HOME-    PO
     Route: 048
     Dates: start: 20051101, end: 20060813
  2. TRILEPTAL [Suspect]
     Indication: NEUROPATHY PERIPHERAL
     Dosage: 300MG   TID -HOSPITAL-  PO
     Route: 048
     Dates: start: 20060813, end: 20060817

REACTIONS (3)
  - HYPOKALAEMIA [None]
  - HYPONATRAEMIA [None]
  - SYNCOPE [None]
